FAERS Safety Report 25170699 (Version 1)
Quarter: 2025Q2

REPORT INFORMATION
  Report Type: Spontaneous
  Country: GB (occurrence: GB)
  Receive Date: 20250408
  Receipt Date: 20250408
  Transmission Date: 20250716
  Serious: Yes (Other)
  Sender: ADVANZ PHARMA
  Company Number: GB-PHARMVIT-4556-3352-ER25-RN1390

PATIENT

DRUGS (1)
  1. PREDNISOLONE [Suspect]
     Active Substance: PREDNISOLONE
     Indication: Dermatomyositis
     Route: 048

REACTIONS (2)
  - Diabetes mellitus [Unknown]
  - Alopecia [Unknown]
